FAERS Safety Report 5866471-9 (Version None)
Quarter: 2008Q3

REPORT INFORMATION
  Report Type: 
  Country: None (occurrence: None)
  Receive Date: 20080902
  Receipt Date: 20080825
  Transmission Date: 20090109
  Serious: Yes (Hospitalization)
  Sender: FDA-Public Use
  Company Number: PHBS2008IT05527

PATIENT
  Age: 55 Year
  Sex: Male

DRUGS (4)
  1. CYCLOSPORINE [Suspect]
     Indication: LIVER TRANSPLANT
     Dosage: UNK
     Dates: start: 20050101
  2. CYCLOSPORINE [Suspect]
     Dosage: 75 MG, BID
  3. PREDNISOLONE [Concomitant]
     Indication: AUTOIMMUNE HEPATITIS
     Dosage: 50 MG/DAY
  4. PREDNISOLONE [Concomitant]
     Indication: LIVER TRANSPLANT

REACTIONS (1)
  - AUTOIMMUNE HEPATITIS [None]
